FAERS Safety Report 20330563 (Version 1)
Quarter: 2022Q1

REPORT INFORMATION
  Report Type: Other
  Country: CN (occurrence: None)
  Receive Date: 20220113
  Receipt Date: 20220113
  Transmission Date: 20220423
  Serious: Yes (Other)
  Sender: FDA-Public Use
  Company Number: CN-ROCHE-2995140

PATIENT
  Age: 46 Year
  Sex: Female

DRUGS (6)
  1. VEMURAFENIB [Suspect]
     Active Substance: VEMURAFENIB
     Indication: Lung adenocarcinoma
     Route: 065
  2. VEMURAFENIB [Suspect]
     Active Substance: VEMURAFENIB
     Route: 065
     Dates: start: 20181017
  3. VEMURAFENIB [Suspect]
     Active Substance: VEMURAFENIB
     Route: 065
  4. OSIMERTINIB [Suspect]
     Active Substance: OSIMERTINIB
     Indication: Lung adenocarcinoma
     Route: 065
     Dates: start: 201801, end: 201807
  5. OSIMERTINIB [Suspect]
     Active Substance: OSIMERTINIB
     Route: 065
     Dates: start: 20181017
  6. GEFITINIB [Suspect]
     Active Substance: GEFITINIB
     Indication: Lung adenocarcinoma
     Route: 048

REACTIONS (5)
  - Palpitations [Unknown]
  - Fatigue [Unknown]
  - Disease progression [Unknown]
  - Rash [Unknown]
  - Drug ineffective [Unknown]

NARRATIVE: CASE EVENT DATE: 20180101
